FAERS Safety Report 8979356 (Version 1)
Quarter: 2012Q4

REPORT INFORMATION
  Report Type: 
  Country: ES (occurrence: GB)
  Receive Date: 20121221
  Receipt Date: 20121221
  Transmission Date: 20130627
  Serious: Yes (Other)
  Sender: FDA-Public Use
  Company Number: GB-FRI-1000041223

PATIENT
  Age: 70 Year
  Sex: Male
  Weight: 87 kg

DRUGS (12)
  1. ACLIDINIUM BROMIDE [Suspect]
     Indication: LUNG LOBECTOMY
     Dosage: 2 Dosage Forms
     Route: 055
     Dates: start: 20121126, end: 20121127
  2. ACLIDINIUM BROMIDE [Suspect]
     Indication: CHRONIC OBSTRUCTIVE PULMONARY DISEASE
  3. ACLIDINIUM BROMIDE [Suspect]
     Indication: EMPHYSEMA
  4. GINKGO BILOBA [Concomitant]
  5. PARACETAMOL [Concomitant]
  6. SEREVENT [Concomitant]
  7. SPIRIVA [Concomitant]
  8. VENTOLIN [Concomitant]
  9. VITAMIN C [Concomitant]
  10. VITAMIN D [Concomitant]
  11. VITAMIN E [Concomitant]
  12. MILK THISTLE SEED [Concomitant]

REACTIONS (5)
  - Dyspnoea [Not Recovered/Not Resolved]
  - Diarrhoea [Not Recovered/Not Resolved]
  - Dysphonia [Not Recovered/Not Resolved]
  - Non-cardiac chest pain [Not Recovered/Not Resolved]
  - Vocal cord disorder [Not Recovered/Not Resolved]
